FAERS Safety Report 13827742 (Version 1)
Quarter: 2017Q3

REPORT INFORMATION
  Report Type: Spontaneous
  Country: US (occurrence: US)
  Receive Date: 20170803
  Receipt Date: 20170803
  Transmission Date: 20171127
  Serious: No
  Sender: FDA-Public Use
  Company Number: US-TEIKOKU PHARMA USA-TPU2017-00321

PATIENT
  Sex: Female

DRUGS (1)
  1. LIDOCAINE PATCH [Suspect]
     Active Substance: LIDOCAINE
     Indication: PAIN
     Dosage: 2 PER DAY, ON ANKLES, KNEES AND THIGHS OR OTHER PLACES MAY NEED IT
     Route: 061
     Dates: start: 2015

REACTIONS (1)
  - Sickle cell anaemia with crisis [Unknown]
